FAERS Safety Report 7784273-3 (Version None)
Quarter: 2011Q3

REPORT INFORMATION
  Report Type: 
  Country: None (occurrence: None)
  Receive Date: 20110928
  Receipt Date: 20110914
  Transmission Date: 20111222
  Serious: Yes (Other)
  Sender: FDA-Public Use
  Company Number: PHHY2011GB82185

PATIENT
  Age: 57 Year
  Sex: Male

DRUGS (5)
  1. TACROLIMUS [Concomitant]
     Indication: RENAL TRANSPLANT
     Dosage: UNK UKN, UNK
  2. SIMULECT [Suspect]
     Indication: RENAL TRANSPLANT
     Dosage: 20 MG, UNK
  3. MYCOPHENOLATE MOFETIL [Concomitant]
     Indication: RENAL TRANSPLANT
     Dosage: UNK UKN, UNK
  4. SIMULECT [Suspect]
     Dosage: 20 MG, UNK
  5. PREDNISOLONE [Concomitant]
     Indication: RENAL TRANSPLANT
     Dosage: UNK UKN, UNK

REACTIONS (7)
  - SUBCUTANEOUS ABSCESS [None]
  - MYCETOMA MYCOTIC [None]
  - SKIN LESION [None]
  - HYPERPLASIA [None]
  - SECRETION DISCHARGE [None]
  - QUALITY OF LIFE DECREASED [None]
  - DERMAL CYST [None]
